FAERS Safety Report 5886722-4 (Version None)
Quarter: 2008Q3

REPORT INFORMATION
  Report Type: 
  Country: None (occurrence: None)
  Receive Date: 20080917
  Receipt Date: 20080911
  Transmission Date: 20090109
  Serious: Yes (Other)
  Sender: FDA-Public Use
  Company Number: PHHY2008GB16942

PATIENT
  Age: 50 Year
  Sex: Female

DRUGS (3)
  1. TEGRETOL [Suspect]
     Dosage: 6 X 200 MG
  2. TEGRETOL [Suspect]
     Dosage: 400 MG AT NIGHT AND 200 MG IN MORNING
  3. EPILIM [Suspect]
     Dosage: 500 MG, UNK

REACTIONS (5)
  - BALANCE DISORDER [None]
  - DIPLOPIA [None]
  - HEADACHE [None]
  - HYPOAESTHESIA [None]
  - TREMOR [None]
